FAERS Safety Report 5480930-2 (Version None)
Quarter: 2007Q4

REPORT INFORMATION
  Report Type: 
  Country: None (occurrence: None)
  Receive Date: 20071004
  Receipt Date: 20070918
  Transmission Date: 20080405
  Serious: Yes (Other)
  Sender: FDA-Public Use
  Company Number: 8027008

PATIENT
  Age: 24 Year
  Sex: Female
  Weight: 60 kg

DRUGS (1)
  1. KEPPRA [Suspect]
     Dosage: 3000 MG /D PO
     Route: 048

REACTIONS (3)
  - PYREXIA [None]
  - RASH [None]
  - THROMBOCYTOPENIA [None]
